FAERS Safety Report 9245945 (Version 1)
Quarter: 2013Q2

REPORT INFORMATION
  Report Type: Report from Study
  Country: DE (occurrence: DE)
  Receive Date: 20130422
  Receipt Date: 20130422
  Transmission Date: 20140414
  Serious: Yes (Hospitalization)
  Sender: FDA-Public Use
  Company Number: PHHY2012DE066743

PATIENT
  Age: 89 Year
  Sex: Male

DRUGS (2)
  1. AMN107 [Suspect]
     Indication: CHRONIC MYELOID LEUKAEMIA
     Dosage: 600 MG, QD
     Route: 048
     Dates: start: 20120524
  2. METOCLOPRAMIDE [Concomitant]
     Dates: start: 20120524

REACTIONS (2)
  - Fall [Unknown]
  - Cellulitis [Not Recovered/Not Resolved]
